FAERS Safety Report 7337220-2 (Version None)
Quarter: 2011Q1

REPORT INFORMATION
  Report Type: 
  Country: None (occurrence: None)
  Receive Date: 20110308
  Receipt Date: 20110302
  Transmission Date: 20110831
  Serious: No
  Sender: FDA-Public Use
  Company Number: US-PFIZER INC-2011046165

PATIENT
  Sex: Male

DRUGS (2)
  1. ADVIL CONGESTION RELIEF [Suspect]
     Indication: RHINORRHOEA
     Dosage: 200 MG, 1X/DAY
     Route: 048
     Dates: start: 20110224, end: 20110301
  2. ADVIL CONGESTION RELIEF [Suspect]
     Indication: NASAL CONGESTION

REACTIONS (1)
  - DRUG INEFFECTIVE [None]
